FAERS Safety Report 9345860 (Version 1)
Quarter: 2013Q2

REPORT INFORMATION
  Report Type: Spontaneous
  Country: US (occurrence: US)
  Receive Date: 20130613
  Receipt Date: 20130613
  Transmission Date: 20140414
  Serious: Yes (Hospitalization)
  Sender: FDA-Public Use
  Company Number: US-ASTRAZENECA-2013SE41377

PATIENT
  Age: 50 Year
  Sex: Female

DRUGS (2)
  1. ENTOCORT EC [Suspect]
     Indication: CROHN^S DISEASE
     Route: 048
  2. ENTOCORT EC [Suspect]
     Indication: CROHN^S DISEASE
     Route: 048

REACTIONS (2)
  - Hypotension [Unknown]
  - Drug dose omission [Unknown]
